FAERS Safety Report 7213856-4 (Version None)
Quarter: 2011Q1

REPORT INFORMATION
  Report Type: 
  Country: None (occurrence: None)
  Receive Date: 20110106
  Receipt Date: 20101227
  Transmission Date: 20110831
  Serious: Yes (Death, Life-Threatening)
  Sender: FDA-Public Use
  Company Number: JP-SANOFI-AVENTIS-2010SA071625

PATIENT
  Age: 80 Year
  Sex: Male
  Weight: 70 kg

DRUGS (15)
  1. PLAVIX [Suspect]
     Route: 048
     Dates: start: 20100502, end: 20100511
  2. ASPIRIN [Suspect]
     Route: 048
     Dates: start: 20100501, end: 20100510
  3. FRANDOL [Concomitant]
     Dates: start: 20100501
  4. PLAVIX [Suspect]
     Route: 048
     Dates: start: 20100501, end: 20100501
  5. TENORMIN [Concomitant]
     Indication: ATRIAL FIBRILLATION
     Route: 048
     Dates: start: 20100503, end: 20100504
  6. MAGNESIUM OXIDE [Concomitant]
     Indication: CONSTIPATION PROPHYLAXIS
     Route: 048
     Dates: start: 20100501, end: 20100503
  7. MEVALOTIN [Suspect]
     Route: 048
     Dates: start: 20100501, end: 20100503
  8. FAMOTIDINE [Concomitant]
     Route: 048
     Dates: start: 20100501
  9. RISPERIDONE [Concomitant]
     Indication: PROPHYLAXIS
     Route: 048
     Dates: start: 20100502, end: 20100503
  10. NITOROL [Concomitant]
     Route: 042
     Dates: start: 20100501, end: 20100502
  11. LASIX [Concomitant]
     Route: 042
     Dates: start: 20100503
  12. HEPARIN [Concomitant]
     Route: 042
     Dates: start: 20100501, end: 20100513
  13. CEFAZOLIN SODIUM [Concomitant]
     Indication: INFECTION PROPHYLAXIS
     Route: 042
     Dates: start: 20100503
  14. HUMULIN R [Concomitant]
     Indication: HYPERGLYCAEMIA
     Dates: start: 20100505
  15. OTSUKA MV [Concomitant]
     Route: 042
     Dates: start: 20100504

REACTIONS (3)
  - HYPERBILIRUBINAEMIA [None]
  - CARDIAC FAILURE [None]
  - RENAL IMPAIRMENT [None]
